FAERS Safety Report 6906375-3 (Version None)
Quarter: 2010Q3

REPORT INFORMATION
  Report Type: 
  Country: None (occurrence: None)
  Receive Date: 20100804
  Receipt Date: 20100728
  Transmission Date: 20110219
  Serious: Yes (Other)
  Sender: FDA-Public Use
  Company Number: A0872733A

PATIENT
  Age: 74 Year
  Sex: Female

DRUGS (12)
  1. ADVAIR DISKUS 100/50 [Suspect]
     Indication: CHRONIC OBSTRUCTIVE PULMONARY DISEASE
     Dosage: 2PUFF TWICE PER DAY
     Route: 055
     Dates: start: 20090101
  2. SEREVENT [Suspect]
     Indication: CHRONIC OBSTRUCTIVE PULMONARY DISEASE
     Route: 055
     Dates: start: 20100201, end: 20100301
  3. CADUET [Concomitant]
  4. ISOSORBIDE [Concomitant]
  5. ATENOLOL [Concomitant]
  6. BENICAR [Concomitant]
  7. SINGULAIR [Concomitant]
  8. SPIRIVA [Concomitant]
  9. OMEPRAZOLE [Concomitant]
  10. FOLGARD [Concomitant]
  11. ALBUTEROL SULFATE [Concomitant]
  12. XOPENEX [Concomitant]

REACTIONS (5)
  - DRUG INEFFECTIVE [None]
  - OESOPHAGITIS [None]
  - OROPHARYNGEAL CANDIDIASIS [None]
  - PNEUMONIA [None]
  - WHEEZING [None]
